FAERS Safety Report 4667227-5 (Version None)
Quarter: 2005Q2

REPORT INFORMATION
  Report Type: 
  Country: None (occurrence: None)
  Receive Date: 20050520
  Receipt Date: 20050112
  Transmission Date: 20051028
  Serious: Yes (Hospitalization, Other)
  Sender: FDA-Public Use
  Company Number: US-BRISTOL-MYERS SQUIBB COMPANY-12826061

PATIENT
  Age: 72 Year
  Sex: Male

DRUGS (10)
  1. SINEMET CR [Suspect]
     Indication: PARKINSONISM
     Route: 048
     Dates: start: 20021119, end: 20030404
  2. CELEXA [Concomitant]
  3. FOSAMAX [Concomitant]
  4. PRILOSEC [Concomitant]
  5. SEROQUEL [Concomitant]
  6. CALCIUM GLUCONATE [Concomitant]
  7. DAPSONE [Concomitant]
  8. LISINOPRIL [Concomitant]
  9. MELATONIN [Concomitant]
  10. SORBITOL [Concomitant]

REACTIONS (1)
  - THROMBOCYTOPENIA [None]
